FAERS Safety Report 25239213 (Version 2)
Quarter: 2025Q2

REPORT INFORMATION
  Report Type: Spontaneous
  Country: BR (occurrence: BR)
  Receive Date: 20250425
  Receipt Date: 20250611
  Transmission Date: 20250716
  Serious: Yes (Other)
  Sender: DAIICHI
  Company Number: BR-DSJP-DS-2025-137682-BR

PATIENT
  Age: 76 Year
  Sex: Female

DRUGS (4)
  1. ENHERTU [Suspect]
     Active Substance: FAM-TRASTUZUMAB DERUXTECAN-NXKI
     Indication: HER2 positive breast cancer
     Route: 065
     Dates: start: 2022, end: 202401
  2. ENHERTU [Suspect]
     Active Substance: FAM-TRASTUZUMAB DERUXTECAN-NXKI
     Route: 065
     Dates: start: 202404, end: 202408
  3. ENHERTU [Suspect]
     Active Substance: FAM-TRASTUZUMAB DERUXTECAN-NXKI
     Route: 065
  4. ENHERTU [Suspect]
     Active Substance: FAM-TRASTUZUMAB DERUXTECAN-NXKI
     Dates: start: 20250220

REACTIONS (10)
  - Cardiac failure [Unknown]
  - Nausea [Recovered/Resolved]
  - Left ventricular dysfunction [Recovering/Resolving]
  - Diarrhoea [Unknown]
  - Nausea [Recovered/Resolved]
  - Rash [Unknown]
  - Fatigue [Recovered/Resolved]
  - Decreased appetite [Recovered/Resolved]
  - Muscular weakness [Recovered/Resolved]
  - Thrombocytopenia [Unknown]

NARRATIVE: CASE EVENT DATE: 20241201
